FAERS Safety Report 20164748 (Version 1)
Quarter: 2021Q4

REPORT INFORMATION
  Report Type: Spontaneous
  Country: US (occurrence: None)
  Receive Date: 20211208
  Receipt Date: 20211208
  Transmission Date: 20220303
  Serious: Yes (Hospitalization)
  Sender: FDA-Public Use
  Company Number: None

PATIENT
  Age: 53 Year
  Sex: Male
  Weight: 60 kg

DRUGS (1)
  1. CARIPRAZINE [Suspect]
     Active Substance: CARIPRAZINE
     Indication: Neuroleptic malignant syndrome
     Dates: start: 20210621, end: 20211127

REACTIONS (5)
  - Confusional state [None]
  - Hallucination [None]
  - Hypertension [None]
  - Muscle rigidity [None]
  - Hyperreflexia [None]

NARRATIVE: CASE EVENT DATE: 20211201
